FAERS Safety Report 24415121 (Version 1)
Quarter: 2024Q4

REPORT INFORMATION
  Report Type: Spontaneous
  Country: RO (occurrence: RO)
  Receive Date: 20241009
  Receipt Date: 20241009
  Transmission Date: 20250115
  Serious: Yes (Death)
  Sender: CELLTRION
  Company Number: RO-ROCHE-3402421

PATIENT

DRUGS (11)
  1. BEVACIZUMAB [Suspect]
     Active Substance: BEVACIZUMAB
     Indication: Hepatocellular carcinoma
     Dosage: 900 MG
     Route: 042
     Dates: start: 20230510
  2. ATEZOLIZUMAB [Suspect]
     Active Substance: ATEZOLIZUMAB
     Indication: Hepatocellular carcinoma
     Dosage: DOSE LAST STUDY DRUG ADMIN PRIOR AE/SAE: 1200MG START DATE OF MOST RECENT DOSE OF STUDY DRUG PRIOR T
     Route: 042
     Dates: start: 20230510
  3. CARVEDILOL [Concomitant]
     Active Substance: CARVEDILOL
     Dosage: EVERY 0.5 DAY
  4. METFORMIN HYDROCHLORIDE [Concomitant]
     Active Substance: METFORMIN HYDROCHLORIDE
  5. GASTROFAIT [Concomitant]
     Dosage: EVERY 0.25 DAY
  6. CONTROLOC [Concomitant]
     Active Substance: PANTOPRAZOLE SODIUM
     Dosage: EVERY 0.5 DAY
  7. PERINDOPRIL [Concomitant]
     Active Substance: PERINDOPRIL
  8. DIETARY SUPPLEMENT\HERBALS\MILK THISTLE [Concomitant]
     Active Substance: MILK THISTLE
     Dosage: EVERY 0.5 DAY
  9. ENTECAVIR [Concomitant]
     Active Substance: ENTECAVIR
     Dosage: EVERY 1 DAY
  10. ARGININE ASPARTATE [Concomitant]
     Active Substance: ARGININE ASPARTATE
  11. URSODIOL [Concomitant]
     Active Substance: URSODIOL
     Dosage: EVERY 0.25 DAY

REACTIONS (3)
  - Death [Fatal]
  - Gingival bleeding [Recovered/Resolved]
  - Intentional product use issue [Unknown]

NARRATIVE: CASE EVENT DATE: 20230721
